FAERS Safety Report 10149922 (Version 1)
Quarter: 2014Q2

REPORT INFORMATION
  Report Type: Spontaneous
  Country: ES (occurrence: ES)
  Receive Date: 20140502
  Receipt Date: 20140502
  Transmission Date: 20141212
  Serious: Yes (Hospitalization)
  Sender: FDA-Public Use
  Company Number: PHHY2014ES050894

PATIENT
  Age: 82 Year
  Sex: Female

DRUGS (8)
  1. SINTROM [Suspect]
     Indication: ISCHAEMIC STROKE
     Dosage: 4 MG, UNK
     Route: 048
     Dates: start: 2011, end: 20130623
  2. IBUPROFEN SANDOZ [Interacting]
     Dosage: 600 MG, TID
     Route: 048
     Dates: start: 20130510, end: 20130623
  3. OMEPRAZOLE [Concomitant]
     Indication: PROPHYLAXIS AGAINST GASTROINTESTINAL ULCER
     Dosage: 20 MG, QD
     Route: 048
     Dates: start: 2011
  4. ENALAPRIL [Concomitant]
     Indication: CARDIAC FAILURE CONGESTIVE
     Dosage: 10 MG, BID
     Route: 048
     Dates: start: 2011
  5. ATORVASTATIN [Concomitant]
     Indication: DYSLIPIDAEMIA
     Dosage: 10 MG, QD
     Route: 048
  6. ALDACTONE [Concomitant]
     Indication: CARDIAC FAILURE CONGESTIVE
     Dosage: 25 MG, QD
     Route: 048
     Dates: start: 2011
  7. SEGURIL [Concomitant]
     Indication: CARDIAC FAILURE CONGESTIVE
     Dosage: 40 MG, QD
     Route: 048
     Dates: start: 2011
  8. UNIKET [Concomitant]
     Dosage: 50 MG, QD
     Route: 048
     Dates: start: 2011

REACTIONS (5)
  - Hyperkalaemia [Recovered/Resolved]
  - Renal failure acute [Recovered/Resolved]
  - Anaemia [Recovering/Resolving]
  - Coagulopathy [Recovered/Resolved]
  - Haematoma [Recovering/Resolving]
